FAERS Safety Report 19588992 (Version 1)
Quarter: 2021Q3

REPORT INFORMATION
  Report Type: Spontaneous
  Country: US (occurrence: US)
  Receive Date: 20210721
  Receipt Date: 20210721
  Transmission Date: 20211014
  Serious: Yes (Death, Other)
  Sender: FDA-Public Use
  Company Number: US-ASTRAZENECA-2021A625394

PATIENT

DRUGS (9)
  1. PROTONIX [Suspect]
     Active Substance: PANTOPRAZOLE SODIUM
     Indication: PRODUCT USED FOR UNKNOWN INDICATION
     Dosage: 40 MG, QD
     Route: 048
  2. PROTONIX [Suspect]
     Active Substance: PANTOPRAZOLE SODIUM
     Indication: PRODUCT USED FOR UNKNOWN INDICATION
     Dosage: 20 MG, QD GENERIC
     Route: 048
     Dates: start: 2011, end: 20190919
  3. PREVACID 24 HR [Suspect]
     Active Substance: LANSOPRAZOLE
     Indication: GASTROOESOPHAGEAL REFLUX DISEASE
     Dosage: 30 MG, BID
     Route: 065
     Dates: start: 2011, end: 20190919
  4. PRILOSEC [Suspect]
     Active Substance: OMEPRAZOLE MAGNESIUM
     Indication: GASTROOESOPHAGEAL REFLUX DISEASE
     Dosage: 40 MG, BID GENERIC
     Route: 048
     Dates: start: 2011, end: 20190919
  5. PRILOSEC [Suspect]
     Active Substance: OMEPRAZOLE MAGNESIUM
     Indication: PRODUCT USED FOR UNKNOWN INDICATION
     Dosage: 40 MG, BID
     Route: 048
  6. PRILOSEC OTC [Suspect]
     Active Substance: OMEPRAZOLE MAGNESIUM
     Indication: GASTROOESOPHAGEAL REFLUX DISEASE
     Dosage: 20 MG, BID
     Route: 048
     Dates: start: 2011, end: 20190919
  7. PRILOSEC [Suspect]
     Active Substance: OMEPRAZOLE MAGNESIUM
     Indication: GASTROOESOPHAGEAL REFLUX DISEASE
     Dosage: 40 MG, BID
     Route: 048
  8. PRILOSEC [Suspect]
     Active Substance: OMEPRAZOLE MAGNESIUM
     Indication: PRODUCT USED FOR UNKNOWN INDICATION
     Dosage: 40 MG, BID GENERIC
     Route: 048
     Dates: start: 2011, end: 20190919
  9. NEXIUM [Suspect]
     Active Substance: ESOMEPRAZOLE MAGNESIUM
     Indication: GASTROOESOPHAGEAL REFLUX DISEASE
     Dosage: 40 MG, QD
     Route: 048
     Dates: start: 2011, end: 20190919

REACTIONS (14)
  - Diabetic nephropathy [Unknown]
  - Renal cyst [Unknown]
  - Renal artery occlusion [Unknown]
  - Intercapillary glomerulosclerosis [Unknown]
  - Nephrocalcinosis [Unknown]
  - Renal failure [Unknown]
  - Hypertensive nephropathy [Unknown]
  - Renal artery stenosis [Unknown]
  - Nephrolithiasis [Unknown]
  - Chronic kidney disease [Fatal]
  - Acute kidney injury [Unknown]
  - Glomerulosclerosis [Unknown]
  - Renal impairment [Unknown]
  - Renal atrophy [Unknown]
